FAERS Safety Report 4400898-7 (Version None)
Quarter: 2004Q3

REPORT INFORMATION
  Report Type: 
  Country: None (occurrence: None)
  Receive Date: 20040907
  Receipt Date: 20030729
  Transmission Date: 20050211
  Serious: No
  Sender: FDA-Public Use
  Company Number: US-BRISTOL-MYERS SQUIBB COMPANY-12340493

PATIENT
  Age: 58 Year
  Sex: Female

DRUGS (10)
  1. COUMADIN [Suspect]
     Indication: CEREBROVASCULAR ACCIDENT
     Dosage: TWO 2.5 MG TABLETS ONCE DAILY
     Route: 048
     Dates: start: 20030725
  2. CALCIUM + VITAMIN D [Concomitant]
  3. MULTI-VITAMIN [Concomitant]
  4. VITAMIN C [Concomitant]
  5. VITAMIN E [Concomitant]
  6. CELEBREX [Concomitant]
  7. PLAQUENIL [Concomitant]
  8. ENBREL [Concomitant]
  9. WELLBUTRIN [Concomitant]
  10. ASPIRIN [Concomitant]

REACTIONS (2)
  - INTERNATIONAL NORMALISED RATIO DECREASED [None]
  - RASH PRURITIC [None]
